FAERS Safety Report 5136482-X (Version None)
Quarter: 2006Q4

REPORT INFORMATION
  Report Type: 
  Country: None (occurrence: None)
  Receive Date: 20061027
  Receipt Date: 20061017
  Transmission Date: 20070319
  Serious: Yes (Other)
  Sender: FDA-Public Use
  Company Number: TR-JNJFOC-20060906582

PATIENT
  Age: 30 Year
  Sex: Female

DRUGS (2)
  1. TOPAMAX [Suspect]
     Indication: MIGRAINE
     Route: 065
  2. VENLAFAXIN [Suspect]
     Indication: MIGRAINE

REACTIONS (2)
  - BLINDNESS UNILATERAL [None]
  - UVEITIS [None]
